FAERS Safety Report 12257238 (Version 4)
Quarter: 2016Q2

REPORT INFORMATION
  Report Type: Spontaneous
  Country: US (occurrence: US)
  Receive Date: 20160412
  Receipt Date: 20160527
  Transmission Date: 20160815
  Serious: Yes (Hospitalization)
  Sender: FDA-Public Use
  Company Number: US-ACTELION PHARMACEUTICALS US, INC.-A-US2016-134268

PATIENT
  Age: 66 Year
  Sex: Female

DRUGS (3)
  1. REVATIO [Concomitant]
     Active Substance: SILDENAFIL CITRATE
  2. DILTIAZEM [Concomitant]
     Active Substance: DILTIAZEM
  3. VELETRI [Suspect]
     Active Substance: EPOPROSTENOL
     Indication: PULMONARY ARTERIAL HYPERTENSION
     Dosage: 20.5 NG/KG, PER MIN
     Route: 042
     Dates: start: 20150611

REACTIONS (6)
  - Blood culture negative [Recovered/Resolved]
  - Device leakage [Recovered/Resolved]
  - Staphylococcus test positive [Recovered/Resolved]
  - Culture urine negative [Recovered/Resolved]
  - Dyspnoea [Unknown]
  - Blood culture positive [Recovered/Resolved]

NARRATIVE: CASE EVENT DATE: 20160331
